FAERS Safety Report 24713454 (Version 1)
Quarter: 2024Q4

REPORT INFORMATION
  Report Type: Spontaneous
  Country: US (occurrence: US)
  Receive Date: 20241209
  Receipt Date: 20241209
  Transmission Date: 20250114
  Serious: No
  Sender: SANOFI AVENTIS
  Company Number: US-SA-2024SA361746

PATIENT
  Sex: Male

DRUGS (3)
  1. DUPIXENT [Suspect]
     Active Substance: DUPILUMAB
     Indication: Dermatitis atopic
     Dosage: 300 MG, QOW
     Route: 058
     Dates: start: 20230620
  2. RELIVER [Concomitant]
     Dosage: INHALER 3 OR MORE DAYS PER WEEK
  3. RESCUE [Concomitant]
     Dosage: INHALER 3 OR MORE DAYS PER WEEK

REACTIONS (2)
  - Impaired quality of life [Recovering/Resolving]
  - Nasopharyngitis [Recovering/Resolving]
